FAERS Safety Report 8943342 (Version 1)
Quarter: 2012Q4

REPORT INFORMATION
  Report Type: 
  Country: JP (occurrence: JP)
  Receive Date: 20121204
  Receipt Date: 20121204
  Transmission Date: 20130627
  Serious: Yes (Hospitalization)
  Sender: FDA-Public Use
  Company Number: JP-AMGEN-JPNSP2012067482

PATIENT
  Age: 60 Year
  Sex: Female
  Weight: 38 kg

DRUGS (7)
  1. VECTIBIX [Suspect]
     Indication: LARGE INTESTINE CARCINOMA
     Route: 041
     Dates: start: 20121002, end: 20121002
  2. VECTIBIX [Suspect]
     Indication: RECURRENT CANCER
  3. LEVOFOLINATE [Concomitant]
     Indication: RECURRENT CANCER
     Dosage: 240 mg, q2wk
     Route: 041
     Dates: start: 20121002, end: 20121002
  4. CAMPTO [Concomitant]
     Indication: RECURRENT CANCER
     Dosage: 170 mg, q2wk
     Route: 041
     Dates: start: 20121002, end: 20121002
  5. 5-FU [Concomitant]
     Indication: RECURRENT CANCER
     Dosage: 3 g, q2wk
     Route: 041
     Dates: start: 20121002, end: 20121004
  6. MINOMYCIN [Concomitant]
     Indication: PROPHYLAXIS
     Dosage: 200 mg, UNK
     Route: 048
     Dates: start: 20121002, end: 20121023
  7. LANSOPRAZOLE OD [Concomitant]
     Indication: GASTROOESOPHAGEAL REFLUX PROPHYLAXIS
     Dosage: 30 mg, UNK
     Route: 048
     Dates: start: 20120403

REACTIONS (2)
  - Interstitial lung disease [Recovering/Resolving]
  - Infusion related reaction [Recovered/Resolved]
